FAERS Safety Report 22301431 (Version 3)
Quarter: 2023Q2

REPORT INFORMATION
  Report Type: Spontaneous
  Country: CH (occurrence: CH)
  Receive Date: 20230509
  Receipt Date: 20230605
  Transmission Date: 20230721
  Serious: Yes (Life-Threatening, Other)
  Sender: FDA-Public Use
  Company Number: CH-JNJFOC-20230515382

PATIENT
  Age: 30 Year
  Sex: Male
  Weight: 85 kg

DRUGS (6)
  1. STELARA [Suspect]
     Active Substance: USTEKINUMAB
     Indication: Colitis ulcerative
     Route: 058
     Dates: start: 2020
  2. STELARA [Suspect]
     Active Substance: USTEKINUMAB
     Route: 058
     Dates: start: 20220424
  3. STELARA [Suspect]
     Active Substance: USTEKINUMAB
     Route: 040
     Dates: start: 20221124
  4. STELARA [Suspect]
     Active Substance: USTEKINUMAB
     Route: 058
     Dates: end: 20230316
  5. PREDNISONE [Concomitant]
     Active Substance: PREDNISONE
     Indication: Colitis ulcerative
     Dates: start: 20221208, end: 20221219
  6. PREDNISONE [Concomitant]
     Active Substance: PREDNISONE
     Dates: start: 20230120, end: 20230402

REACTIONS (3)
  - Pancytopenia [Recovered/Resolved]
  - Toxicity to various agents [Unknown]
  - Myelodysplastic syndrome [Unknown]

NARRATIVE: CASE EVENT DATE: 20221214
